FAERS Safety Report 7223187-4 (Version None)
Quarter: 2011Q1

REPORT INFORMATION
  Report Type: 
  Country: None (occurrence: None)
  Receive Date: 20110112
  Receipt Date: 20100823
  Transmission Date: 20110831
  Serious: No
  Sender: FDA-Public Use
  Company Number: US-ALLERGAN-1002310US

PATIENT
  Age: 68 Year
  Sex: Female

DRUGS (4)
  1. TRUSOPT [Concomitant]
  2. BETOPTIC [Concomitant]
  3. RESTASIS [Suspect]
     Indication: DRY EYE
     Dosage: UNK
     Route: 047
     Dates: start: 20100228, end: 20100228
  4. XALATAN [Concomitant]

REACTIONS (2)
  - DRY EYE [None]
  - EYE IRRITATION [None]
